FAERS Safety Report 25260664 (Version 1)
Quarter: 2025Q2

REPORT INFORMATION
  Report Type: Spontaneous
  Country: US (occurrence: US)
  Receive Date: 20250501
  Receipt Date: 20250501
  Transmission Date: 20250716
  Serious: Yes (Other)
  Sender: NOVO NORDISK
  Company Number: US-NOVOPROD-1410936

PATIENT
  Age: 80 Year
  Sex: Female

DRUGS (4)
  1. NOVOLOG [Suspect]
     Active Substance: INSULIN ASPART
     Indication: Type 1 diabetes mellitus
     Dates: start: 2007
  2. LEVEMIR [Suspect]
     Active Substance: INSULIN DETEMIR
     Indication: Type 1 diabetes mellitus
     Dates: start: 2007
  3. DEVICE [Concomitant]
     Active Substance: DEVICE
     Indication: Insulin resistance
  4. TRESIBA [Suspect]
     Active Substance: INSULIN DEGLUDEC
     Indication: Type 1 diabetes mellitus

REACTIONS (9)
  - Histiocytosis [Recovering/Resolving]
  - Lymphoma [Recovering/Resolving]
  - Central nervous system lymphoma [Recovering/Resolving]
  - Neoplasm malignant [Recovered/Resolved]
  - Diabetic retinal oedema [Recovering/Resolving]
  - Central vision loss [Not Recovered/Not Resolved]
  - Insulin resistance [Not Recovered/Not Resolved]
  - Memory impairment [Unknown]
  - Blood glucose decreased [Not Recovered/Not Resolved]

NARRATIVE: CASE EVENT DATE: 20190101
